FAERS Safety Report 4313972-0 (Version None)
Quarter: 2004Q1

REPORT INFORMATION
  Report Type: 
  Country: None (occurrence: None)
  Receive Date: 20040305
  Receipt Date: 20040224
  Transmission Date: 20041129
  Serious: Yes (Death)
  Sender: FDA-Public Use
  Company Number: 04P-144-0251654-00

PATIENT
  Age: 54 Year
  Sex: Female

DRUGS (3)
  1. KALETRA [Suspect]
     Indication: HIV INFECTION
     Dosage: 3 CAPSULE, 2 IN 1 D, PER ORAL
     Route: 048
     Dates: start: 20030411, end: 20030818
  2. ABACAVIR [Concomitant]
  3. TENOFOVIR [Concomitant]

REACTIONS (5)
  - DIARRHOEA [None]
  - HIV DISEASE PROGRESSION [None]
  - HIV WASTING SYNDROME [None]
  - MALAISE [None]
  - VOMITING [None]
